FAERS Safety Report 6768636-0 (Version None)
Quarter: 2010Q2

REPORT INFORMATION
  Report Type: 
  Country: None (occurrence: None)
  Receive Date: 20100614
  Receipt Date: 20100602
  Transmission Date: 20101027
  Serious: Yes (Hospitalization)
  Sender: FDA-Public Use
  Company Number: CHPA2010US09398

PATIENT
  Age: 18 Year
  Sex: Female

DRUGS (2)
  1. EX-LAX MAX STR LAX PILLS SENNA (NCH) [Suspect]
     Indication: CONSTIPATION
     Dosage: 25 MG, QD
     Route: 048
     Dates: start: 20100527, end: 20100530
  2. CONTRACEPTIVES NOS [Concomitant]

REACTIONS (2)
  - KIDNEY INFECTION [None]
  - NAUSEA [None]
